FAERS Safety Report 20689933 (Version 1)
Quarter: 2022Q2

REPORT INFORMATION
  Report Type: Spontaneous
  Country: FR (occurrence: FR)
  Receive Date: 20220408
  Receipt Date: 20220408
  Transmission Date: 20220721
  Serious: Yes (Other)
  Sender: FDA-Public Use
  Company Number: None

PATIENT
  Age: 55 Year
  Sex: Male
  Weight: 87.7 kg

DRUGS (12)
  1. OXALIPLATIN [Interacting]
     Active Substance: OXALIPLATIN
     Indication: Rectal adenocarcinoma
     Dosage: UNK
     Route: 041
     Dates: start: 20220110, end: 20220208
  2. INNOHEP [Interacting]
     Active Substance: TINZAPARIN SODIUM
     Indication: Thrombosis prophylaxis
     Dosage: 18000 IU, 1X/DAY
     Route: 058
  3. PRIMPERAN [Concomitant]
     Active Substance: METOCLOPRAMIDE HYDROCHLORIDE
     Indication: Prophylaxis of nausea and vomiting
     Dosage: 30 MG, 1X/DAY
     Route: 048
     Dates: start: 20220110
  4. PREDNISOLONE SODIUM METAZOATE [Concomitant]
     Active Substance: PREDNISOLONE SODIUM METAZOATE
     Indication: Chemotherapy side effect prophylaxis
     Dosage: 2 TABS/DAY ON D1 AND D2 THEN 1 TAB/DAY ON D3 AND D4
     Route: 048
     Dates: start: 20220110
  5. ONDANSETRON [Concomitant]
     Active Substance: ONDANSETRON
     Indication: Prophylaxis of nausea and vomiting
     Dosage: UNK
  6. EMEND [Concomitant]
     Active Substance: APREPITANT
     Indication: Prophylaxis of nausea and vomiting
     Dosage: 125 MG 1 HOUR BEFORE THE CURE THEN 80 MG/DAY THE FOLLOWING 2 DAYS
     Route: 048
     Dates: start: 20220110
  7. GLYCERIN\MINERAL OIL\PETROLATUM [Concomitant]
     Active Substance: GLYCERIN\MINERAL OIL\PETROLATUM
     Indication: Dry skin
     Dosage: UNK
     Route: 003
  8. BETAMETHASONE SODIUM PHOSPHATE [Concomitant]
     Active Substance: BETAMETHASONE SODIUM PHOSPHATE
     Indication: Chemotherapy side effect prophylaxis
     Dosage: 1 DF
     Route: 042
     Dates: start: 20220110
  9. AVASTIN [Concomitant]
     Active Substance: BEVACIZUMAB
     Indication: Rectal adenocarcinoma
     Dosage: 1 DF
     Route: 041
     Dates: start: 20220110
  10. LEUCOVORIN [Concomitant]
     Active Substance: LEUCOVORIN
     Indication: Chemotherapy side effect prophylaxis
     Dosage: 1 DF
     Route: 041
     Dates: start: 20220110
  11. SODIUM BICARBONATE [Concomitant]
     Active Substance: SODIUM BICARBONATE
     Indication: Chemotherapy side effect prophylaxis
     Dosage: 1.4 %
  12. FLUOROURACIL [Concomitant]
     Active Substance: FLUOROURACIL
     Indication: Rectal adenocarcinoma
     Dosage: 1 DF
     Route: 041
     Dates: start: 20220110

REACTIONS (4)
  - Drug interaction [Recovered/Resolved]
  - Chills [Recovered/Resolved]
  - Chest pain [Recovered/Resolved]
  - Infusion related reaction [Recovered/Resolved]

NARRATIVE: CASE EVENT DATE: 20220208
